FAERS Safety Report 16337271 (Version 1)
Quarter: 2019Q2

REPORT INFORMATION
  Report Type: Spontaneous
  Country: US (occurrence: US)
  Receive Date: 20190416
  Receipt Date: 20190416
  Transmission Date: 20190711
  Serious: Yes (Death, Other)
  Sender: FDA-Public Use
  Company Number: None

PATIENT
  Age: 38 Year
  Sex: Male

DRUGS (1)
  1. ALBUTEROL SULFATE 90MCG [Suspect]
     Active Substance: ALBUTEROL SULFATE
     Indication: ASTHMA
     Route: 055
     Dates: start: 20190304

REACTIONS (3)
  - Dyspnoea [None]
  - Throat tightness [None]
  - Throat irritation [None]

NARRATIVE: CASE EVENT DATE: 20190304
